FAERS Safety Report 23142433 (Version 1)
Quarter: 2023Q4

REPORT INFORMATION
  Report Type: Spontaneous
  Country: US (occurrence: None)
  Receive Date: 20231102
  Receipt Date: 20231102
  Transmission Date: 20240110
  Serious: No
  Sender: FDA-Public Use
  Company Number: None

PATIENT
  Age: 68 Year
  Sex: Female

DRUGS (2)
  1. DUPIXENT [Suspect]
     Active Substance: DUPILUMAB
     Indication: Dermatitis atopic
     Dosage: OTHER FREQUENCY : EVERY OTHER WEEK;?
     Route: 058
     Dates: start: 20200806
  2. DUPIXENT [Concomitant]
     Active Substance: DUPILUMAB
     Dates: start: 20200806

REACTIONS (2)
  - Chest discomfort [None]
  - Device issue [None]

NARRATIVE: CASE EVENT DATE: 20231031
